FAERS Safety Report 12923221 (Version 1)
Quarter: 2016Q4

REPORT INFORMATION
  Report Type: Spontaneous
  Country: US (occurrence: US)
  Receive Date: 20161109
  Receipt Date: 20161109
  Transmission Date: 20170207
  Serious: No
  Sender: FDA-Public Use
  Company Number: US-ASTRAZENECA-2016SF11326

PATIENT
  Sex: Female
  Weight: 59 kg

DRUGS (12)
  1. VITAMINS AND MINERALS [Concomitant]
  2. LISINOPRIL. [Suspect]
     Active Substance: LISINOPRIL
     Indication: BLOOD PRESSURE ABNORMAL
     Route: 048
  3. GARLIC. [Concomitant]
     Active Substance: GARLIC
  4. ONGLYZA [Suspect]
     Active Substance: SAXAGLIPTIN HYDROCHLORIDE
     Indication: TYPE 2 DIABETES MELLITUS
     Route: 048
     Dates: start: 2015, end: 201609
  5. ASPIRIN. [Concomitant]
     Active Substance: ASPIRIN
  6. BANDRONE [Concomitant]
     Indication: BACK DISORDER
  7. PRAVASTATIN. [Concomitant]
     Active Substance: PRAVASTATIN
  8. GLIPIZIDE. [Concomitant]
     Active Substance: GLIPIZIDE
     Indication: DIABETES MELLITUS
  9. ZALEPLON. [Concomitant]
     Active Substance: ZALEPLON
     Indication: INSOMNIA
  10. CALCIUM [Concomitant]
     Active Substance: CALCIUM
  11. CLOPIDROGREL [Concomitant]
     Active Substance: CLOPIDOGREL BISULFATE
     Indication: ANTICOAGULANT THERAPY
  12. LEVOTHYROXINE. [Concomitant]
     Active Substance: LEVOTHYROXINE
     Indication: THYROID DISORDER

REACTIONS (4)
  - Hypoacusis [Unknown]
  - Intentional product misuse [Unknown]
  - Fatigue [Unknown]
  - Blood pressure decreased [Unknown]
